FAERS Safety Report 26076327 (Version 1)
Quarter: 2025Q4

REPORT INFORMATION
  Report Type: Spontaneous
  Country: CN (occurrence: CN)
  Receive Date: 20251121
  Receipt Date: 20251121
  Transmission Date: 20260117
  Serious: Yes (Death)
  Sender: MERCK SHARP & DOHME LLC
  Company Number: CN-009507513-2351359

PATIENT
  Age: 90 Year
  Sex: Male
  Weight: 60 kg

DRUGS (8)
  1. CILASTATIN SODIUM\IMIPENEM [Suspect]
     Active Substance: CILASTATIN SODIUM\IMIPENEM
     Indication: Pneumonia
     Route: 042
     Dates: start: 20251018, end: 20251020
  2. CASPOFUNGIN ACETATE [Suspect]
     Active Substance: CASPOFUNGIN ACETATE
     Indication: Pneumonia
     Route: 041
     Dates: start: 20251018, end: 20251022
  3. CASPOFUNGIN ACETATE [Suspect]
     Active Substance: CASPOFUNGIN ACETATE
     Indication: Pneumonia
     Route: 041
     Dates: start: 20251017, end: 20251017
  4. SODIUM CHLORIDE [Concomitant]
     Active Substance: SODIUM CHLORIDE
     Indication: Medication dilution
     Route: 041
     Dates: start: 20251018, end: 20251022
  5. SODIUM CHLORIDE [Concomitant]
     Active Substance: SODIUM CHLORIDE
     Indication: Medication dilution
     Route: 058
     Dates: start: 20251018, end: 20251020
  6. SODIUM CHLORIDE [Concomitant]
     Active Substance: SODIUM CHLORIDE
     Indication: Medication dilution
     Route: 041
     Dates: start: 20251016, end: 20251020
  7. SODIUM CHLORIDE [Concomitant]
     Active Substance: SODIUM CHLORIDE
     Indication: Medication dilution
     Dosage: 0.9%
     Route: 041
     Dates: start: 20251017, end: 20251017
  8. CEFTRIAXONE SODIUM [Suspect]
     Active Substance: CEFTRIAXONE SODIUM
     Indication: Pneumonia
     Route: 041
     Dates: start: 20251016, end: 20251020

REACTIONS (2)
  - White blood cell count decreased [Fatal]
  - Neutrophil count decreased [Fatal]

NARRATIVE: CASE EVENT DATE: 20251019
